APPROVED DRUG PRODUCT: BETAMETHASONE DIPROPIONATE
Active Ingredient: BETAMETHASONE DIPROPIONATE
Strength: EQ 0.05% BASE
Dosage Form/Route: CREAM;TOPICAL
Application: A074579 | Product #001
Applicant: PERRIGO NEW YORK INC
Approved: Nov 26, 1997 | RLD: No | RS: No | Type: DISCN